FAERS Safety Report 25722150 (Version 1)
Quarter: 2025Q3

REPORT INFORMATION
  Report Type: Spontaneous
  Country: US (occurrence: US)
  Receive Date: 20250825
  Receipt Date: 20250825
  Transmission Date: 20251020
  Serious: No
  Sender: ELI LILLY AND COMPANY
  Company Number: US-ELI_LILLY_AND_COMPANY-US202508021949

PATIENT
  Age: 60 Year
  Sex: Female

DRUGS (6)
  1. TRULICITY [Suspect]
     Active Substance: DULAGLUTIDE
     Indication: Product used for unknown indication
     Route: 058
  2. TRULICITY [Suspect]
     Active Substance: DULAGLUTIDE
     Indication: Product used for unknown indication
     Route: 058
  3. TRULICITY [Suspect]
     Active Substance: DULAGLUTIDE
     Indication: Product used for unknown indication
     Route: 058
  4. TRULICITY [Suspect]
     Active Substance: DULAGLUTIDE
     Route: 058
  5. TRULICITY [Suspect]
     Active Substance: DULAGLUTIDE
     Route: 058
  6. TRULICITY [Suspect]
     Active Substance: DULAGLUTIDE
     Route: 058

REACTIONS (5)
  - Visual impairment [Unknown]
  - Blood glucose increased [Unknown]
  - Injection site pain [Unknown]
  - Extra dose administered [Unknown]
  - Inappropriate schedule of product administration [Unknown]
